FAERS Safety Report 7964299-7 (Version None)
Quarter: 2011Q4

REPORT INFORMATION
  Report Type: 
  Country: None (occurrence: None)
  Receive Date: 20111208
  Receipt Date: 20111126
  Transmission Date: 20120403
  Serious: Yes (Disabling)
  Sender: FDA-Public Use
  Company Number: US-ASTELLAS-2011US006378

PATIENT
  Sex: Male

DRUGS (4)
  1. PROGRAF [Suspect]
     Indication: NEPHROTIC SYNDROME
     Dosage: 2 MG, BID
     Route: 065
     Dates: start: 20110407
  2. ENALAPRIL MALEATE [Concomitant]
     Indication: PRODUCT USED FOR UNKNOWN INDICATION
     Dosage: UNK
     Route: 065
  3. PROGRAF [Suspect]
     Dosage: 2 MG, BID
     Route: 065
  4. PROGRAF [Suspect]
     Dosage: 4 MG, BID
     Route: 065

REACTIONS (5)
  - OFF LABEL USE [None]
  - MYALGIA [None]
  - MUSCLE TWITCHING [None]
  - ABASIA [None]
  - FATIGUE [None]
